FAERS Safety Report 13184804 (Version 1)
Quarter: 2017Q1

REPORT INFORMATION
  Report Type: Spontaneous
  Country: CH (occurrence: CG)
  Receive Date: 20170203
  Receipt Date: 20170203
  Transmission Date: 20170428
  Serious: Yes (Hospitalization)
  Sender: FDA-Public Use
  Company Number: CH-JNJFOC-20170200985

PATIENT

DRUGS (2)
  1. HALOPERIDOL. [Suspect]
     Active Substance: HALOPERIDOL
     Indication: COUNTERFEIT DRUG ADMINISTERED
     Route: 065
  2. DIAZEPAM. [Suspect]
     Active Substance: DIAZEPAM
     Indication: PRODUCT USED FOR UNKNOWN INDICATION
     Route: 065

REACTIONS (2)
  - Dystonia [Recovered/Resolved]
  - Counterfeit drug administered [Unknown]
